FAERS Safety Report 9731525 (Version 2)
Quarter: 2014Q1

REPORT INFORMATION
  Report Type: Report from Study
  Country: US (occurrence: US)
  Receive Date: 20131205
  Receipt Date: 20140304
  Transmission Date: 20141002
  Serious: Yes (Hospitalization)
  Sender: FDA-Public Use
  Company Number: US-ROCHE-1314127

PATIENT
  Sex: Male

DRUGS (6)
  1. LUCENTIS [Suspect]
     Indication: MACULAR DEGENERATION
     Dosage: REGIMEN 2
     Route: 050
     Dates: start: 201303
  2. LUCENTIS [Suspect]
     Dosage: REGIMEN 3, LAST DOSE GIVEN ON 21/SEP/2013
     Route: 050
  3. INSULIN [Concomitant]
  4. CAPTOPRIL [Concomitant]
  5. LOVASTATIN [Concomitant]
  6. FUROSEMIDE [Concomitant]

REACTIONS (2)
  - Rectal cancer [Recovering/Resolving]
  - Urinary tract infection [Recovering/Resolving]
